FAERS Safety Report 8233710-9 (Version None)
Quarter: 2012Q1

REPORT INFORMATION
  Report Type: 
  Country: None (occurrence: None)
  Receive Date: 20120326
  Receipt Date: 20120320
  Transmission Date: 20120608
  Serious: Yes (Hospitalization)
  Sender: FDA-Public Use
  Company Number: PHHO2012PL004624

PATIENT
  Sex: Male
  Weight: 82 kg

DRUGS (7)
  1. BLINDED FORTECORTIN [Suspect]
     Indication: MULTIPLE MYELOMA
     Dosage: CODE NOT BROKEN
  2. BLINDED PLACEBO [Suspect]
     Indication: MULTIPLE MYELOMA
     Dosage: CODE NOT BROKEN
  3. VELCADE [Suspect]
     Indication: MULTIPLE MYELOMA
     Dosage: CODE NOT BROKEN
  4. COMPARATOR BORTEZOMIB [Suspect]
     Indication: MULTIPLE MYELOMA
  5. BLINDED NO TREATMENT RECEIVED [Suspect]
     Indication: MULTIPLE MYELOMA
     Dosage: CODE NOT BROKEN
  6. BLINDED LBH589 [Suspect]
     Indication: MULTIPLE MYELOMA
     Dosage: CODE NOT BROKEN
  7. COMPARATOR DEXAMETHASONE [Suspect]
     Indication: MULTIPLE MYELOMA

REACTIONS (1)
  - DEEP VEIN THROMBOSIS [None]
